FAERS Safety Report 14977165 (Version 1)
Quarter: 2018Q2

REPORT INFORMATION
  Report Type: Spontaneous
  Country: DE (occurrence: DE)
  Receive Date: 20180606
  Receipt Date: 20180606
  Transmission Date: 20180711
  Serious: Yes (Hospitalization)
  Sender: FDA-Public Use
  Company Number: DE-TEVA-2018-DE-902467

PATIENT
  Age: 84 Year
  Sex: Female

DRUGS (9)
  1. MORONAL DRAGEES [Concomitant]
     Dosage: 2-2-2-0, DRAGEES
     Route: 065
  2. NYSTATINE [Concomitant]
     Dosage: 1-1-1-1, JUICE
  3. IDEOS [Concomitant]
     Active Substance: CALCIUM CARBONATE\CHOLECALCIFEROL
     Dosage: 1-0-1-0
  4. DECORTIN [Concomitant]
     Active Substance: PREDNISONE
     Dosage: 1-0-0-0
  5. VIGANTOLETTEN [Concomitant]
     Active Substance: CHOLECALCIFEROL
     Dosage: 1000 IE, 0-1-0-0
     Route: 065
  6. BACLOFEN. [Suspect]
     Active Substance: BACLOFEN
     Dosage: 10 MG, 1-1-1-0
  7. PANTOPRAZOL [Concomitant]
     Active Substance: PANTOPRAZOLE SODIUM
     Dosage: 0-0-1-0
  8. ASCORBIC ACID. [Concomitant]
     Active Substance: ASCORBIC ACID
     Dosage: 0-1-0-0
  9. MAGNESIUM [Concomitant]
     Active Substance: MAGNESIUM
     Dosage: 0-1-0-0
     Route: 065

REACTIONS (2)
  - Myoclonus [Unknown]
  - Reflexes abnormal [Unknown]
